FAERS Safety Report 13745727 (Version 1)
Quarter: 2017Q3

REPORT INFORMATION
  Report Type: Spontaneous
  Country: US (occurrence: US)
  Receive Date: 20170712
  Receipt Date: 20170712
  Transmission Date: 20171127
  Serious: No
  Sender: FDA-Public Use
  Company Number: US-LEXICON PHARMACEUTICALS, INC-17-1606-00390

PATIENT
  Sex: Male

DRUGS (18)
  1. FIBER [Concomitant]
     Active Substance: PSYLLIUM HUSK
  2. TYLENOL [Concomitant]
     Active Substance: ACETAMINOPHEN
  3. SANDOSTATIN [Concomitant]
     Active Substance: OCTREOTIDE ACETATE
  4. QUESTRAN [Concomitant]
     Active Substance: CHOLESTYRAMINE
  5. CREON [Concomitant]
     Active Substance: PANCRELIPASE AMYLASE\PANCRELIPASE LIPASE\PANCRELIPASE PROTEASE
  6. DIPHENOXYLATE-ATROPINE [Concomitant]
  7. MEGACE ORAL SUS [Concomitant]
  8. OMEGA3 [Concomitant]
  9. LOPERAMIDE [Concomitant]
     Active Substance: LOPERAMIDE
  10. ZOFRAN [Concomitant]
     Active Substance: ONDANSETRON HYDROCHLORIDE
  11. MELATONIN [Concomitant]
     Active Substance: MELATONIN
  12. MULTIVITAMIN [Concomitant]
     Active Substance: VITAMINS
  13. TELOTRISTAT ETHYL [Suspect]
     Active Substance: TELOTRISTAT ETHYL
     Indication: CARCINOID TUMOUR
     Route: 048
     Dates: start: 20170422
  14. BELLADONNA-OPIUM [Concomitant]
  15. K-PHOS [Concomitant]
     Active Substance: POTASSIUM PHOSPHATE, MONOBASIC
  16. SIMETHICONE (DIMETHICONE) [Concomitant]
     Active Substance: DIMETHICONE
  17. ROXICODONE [Concomitant]
     Active Substance: OXYCODONE HYDROCHLORIDE
  18. METAMUCIL [Concomitant]
     Active Substance: PLANTAGO SEED

REACTIONS (1)
  - Insomnia [Unknown]

NARRATIVE: CASE EVENT DATE: 2017
